FAERS Safety Report 4761104-7 (Version None)
Quarter: 2005Q3

REPORT INFORMATION
  Report Type: 
  Country: None (occurrence: None)
  Receive Date: 20050901
  Receipt Date: 20050901
  Transmission Date: 20060218
  Serious: Yes (Death, Hospitalization)
  Sender: FDA-Public Use
  Company Number: None

PATIENT
  Sex: Female
  Weight: 65.91 kg

DRUGS (5)
  1. DOXORUBICIN [Suspect]
     Indication: ENDOMETRIAL CANCER
     Dosage: SEE IMAGE
     Route: 042
     Dates: start: 20050811, end: 20050811
  2. CISPLATIN [Suspect]
     Dosage: SEE IMAGE
     Route: 042
     Dates: start: 20050811, end: 20050811
  3. PACLITAXEL [Suspect]
     Dosage: SEE IMAGE
     Dates: start: 20050812, end: 20050812
  4. PACLITAXEL [Suspect]
     Dosage: SEE IMAGE
     Dates: start: 20050811
  5. NEULASTA [Suspect]
     Dosage: SEE IMAGE
     Route: 058
     Dates: start: 20050811

REACTIONS (15)
  - ASTHENIA [None]
  - DEHYDRATION [None]
  - HAEMOGLOBIN ABNORMAL [None]
  - HYPOKALAEMIA [None]
  - HYPOXIA [None]
  - INFECTION [None]
  - METASTASES TO LUNG [None]
  - NAUSEA [None]
  - NEUTROPENIA [None]
  - PNEUMONIA [None]
  - RECTAL HAEMORRHAGE [None]
  - RESPIRATORY FAILURE [None]
  - SEPSIS [None]
  - THROMBOCYTOPENIA [None]
  - VOMITING [None]
